FAERS Safety Report 9394411 (Version 1)
Quarter: 2013Q3

REPORT INFORMATION
  Report Type: Spontaneous
  Country: FR (occurrence: FR)
  Receive Date: 20130711
  Receipt Date: 20130711
  Transmission Date: 20140515
  Serious: Yes (Other)
  Sender: FDA-Public Use
  Company Number: FR-ACCORD-018507

PATIENT
  Age: 49 Year
  Sex: Female

DRUGS (1)
  1. PACLITAXEL [Suspect]
     Indication: BREAST CANCER METASTATIC
     Dosage: 147 MG PER COURSE ( 1 IN 1 CYCLE)
     Route: 042
     Dates: start: 20130129

REACTIONS (4)
  - Hypersensitivity [Recovered/Resolved]
  - Malaise [Recovered/Resolved]
  - Tachypnoea [Recovered/Resolved]
  - Tachycardia [Recovered/Resolved]
